FAERS Safety Report 7927189-1 (Version None)
Quarter: 2011Q4

REPORT INFORMATION
  Report Type: 
  Country: None (occurrence: None)
  Receive Date: 20111118
  Receipt Date: 20111116
  Transmission Date: 20120403
  Serious: Yes (Other)
  Sender: FDA-Public Use
  Company Number: US-B.I. PHARMACEUTICALS,INC./RIDGEFIELD-2011-BP-26395BP

PATIENT
  Sex: Male

DRUGS (4)
  1. REMICADE [Concomitant]
  2. PRADAXA [Suspect]
     Dosage: 300 MG
     Route: 048
  3. PRILOSEC [Concomitant]
  4. PREDNISONE TAB [Concomitant]

REACTIONS (1)
  - GASTROINTESTINAL HAEMORRHAGE [None]
